FAERS Safety Report 4375947-5 (Version None)
Quarter: 2004Q2

REPORT INFORMATION
  Report Type: 
  Country: None (occurrence: None)
  Receive Date: 20040611
  Receipt Date: 20040602
  Transmission Date: 20050107
  Serious: Yes (Other)
  Sender: FDA-Public Use
  Company Number: US-BRISTOL-MYERS SQUIBB COMPANY-12604666

PATIENT
  Age: 79 Year
  Sex: Female
  Weight: 49 kg

DRUGS (12)
  1. PARAPLATIN [Suspect]
     Indication: OVARIAN CANCER
     Dosage: EXP. DATE 30-JUN-05 FOR 4A78735, TX INITIATED MAR-2004 WEEKLY DOSE, CHANGE TO Q3W
     Route: 042
     Dates: start: 20040526, end: 20040526
  2. KYTRIL [Concomitant]
     Indication: PREMEDICATION
  3. ARICEPT [Concomitant]
  4. POTASSIUM CHLORIDE [Concomitant]
  5. EXELON [Concomitant]
  6. NISOLDIPINE [Concomitant]
  7. LASIX [Concomitant]
  8. COUMADIN [Concomitant]
  9. ENALAPRIL [Concomitant]
  10. TOPROL-XL [Concomitant]
  11. MULTI-VITAMIN [Concomitant]
  12. ALPHAGAN [Concomitant]
     Route: 047

REACTIONS (6)
  - CHEST DISCOMFORT [None]
  - DYSPNOEA [None]
  - ERYTHEMA [None]
  - EYE SWELLING [None]
  - PANIC DISORDER [None]
  - PRURITUS [None]
